FAERS Safety Report 4282710-2 (Version None)
Quarter: 2004Q1

REPORT INFORMATION
  Report Type: 
  Country: None (occurrence: None)
  Receive Date: 20040130
  Receipt Date: 20030325
  Transmission Date: 20041129
  Serious: No
  Sender: FDA-Public Use
  Company Number: US-BRISTOL-MYERS SQUIBB COMPANY-12221941

PATIENT
  Sex: Male

DRUGS (1)
  1. SERZONE [Suspect]
     Dosage: STRENGTH/CONCENTRATION 400 MG
     Route: 048

REACTIONS (4)
  - ANXIETY [None]
  - DELUSION [None]
  - INSOMNIA [None]
  - MEDICATION ERROR [None]
